FAERS Safety Report 13411640 (Version 2)
Quarter: 2018Q1

REPORT INFORMATION
  Report Type: Spontaneous
  Country: US (occurrence: US)
  Receive Date: 20170406
  Receipt Date: 20180118
  Transmission Date: 20180508
  Serious: No
  Sender: FDA-Public Use
  Company Number: US-JNJFOC-20170302231

PATIENT
  Sex: Male

DRUGS (14)
  1. RISPERDAL [Suspect]
     Active Substance: RISPERIDONE
     Indication: PSYCHOTIC DISORDER
     Dosage: IN VARYING DOSES OF 1 MG AND 2 MG
     Route: 048
     Dates: start: 20011102, end: 20060926
  2. RISPERDAL [Suspect]
     Active Substance: RISPERIDONE
     Indication: ABNORMAL BEHAVIOUR
     Route: 048
     Dates: start: 20010417
  3. RISPERDAL [Suspect]
     Active Substance: RISPERIDONE
     Indication: AFFECTIVE DISORDER
     Dosage: IN VARYING DOSES OF 1 MG AND 2 MG
     Route: 048
     Dates: start: 20011102, end: 20060926
  4. RISPERDAL [Suspect]
     Active Substance: RISPERIDONE
     Indication: SLEEP DISORDER THERAPY
     Dosage: IN VARYING DOSES OF 1 MG AND 2 MG
     Route: 048
     Dates: start: 20011102, end: 20060926
  5. RISPERDAL [Suspect]
     Active Substance: RISPERIDONE
     Indication: SLEEP DISORDER THERAPY
     Route: 048
     Dates: start: 20010417
  6. RISPERDAL [Suspect]
     Active Substance: RISPERIDONE
     Indication: AFFECTIVE DISORDER
     Route: 048
     Dates: start: 20010417
  7. RISPERDAL [Suspect]
     Active Substance: RISPERIDONE
     Indication: PSYCHOTIC DISORDER
     Route: 048
     Dates: start: 20010417
  8. RISPERDAL [Suspect]
     Active Substance: RISPERIDONE
     Indication: DRUG THERAPY
     Route: 048
     Dates: start: 20010417
  9. RISPERDAL [Suspect]
     Active Substance: RISPERIDONE
     Indication: DRUG THERAPY
     Dosage: IN VARYING DOSES OF 1 MG AND 2 MG
     Route: 048
     Dates: start: 20011102, end: 20060926
  10. RISPERDAL [Suspect]
     Active Substance: RISPERIDONE
     Indication: ABNORMAL BEHAVIOUR
     Dosage: IN VARYING DOSES OF 1 MG AND 2 MG
     Route: 048
     Dates: start: 20011102, end: 20060926
  11. RISPERDAL [Suspect]
     Active Substance: RISPERIDONE
     Indication: ATTENTION DEFICIT/HYPERACTIVITY DISORDER
     Route: 048
     Dates: start: 20010417
  12. RISPERDAL [Suspect]
     Active Substance: RISPERIDONE
     Indication: ATTENTION DEFICIT/HYPERACTIVITY DISORDER
     Dosage: IN VARYING DOSES OF 1 MG AND 2 MG
     Route: 048
     Dates: start: 20011102, end: 20060926
  13. RISPERDAL [Suspect]
     Active Substance: RISPERIDONE
     Indication: CONDUCT DISORDER
     Route: 048
     Dates: start: 20010417
  14. RISPERDAL [Suspect]
     Active Substance: RISPERIDONE
     Indication: CONDUCT DISORDER
     Dosage: IN VARYING DOSES OF 1 MG AND 2 MG
     Route: 048
     Dates: start: 20011102, end: 20060926

REACTIONS (2)
  - Emotional disorder [Unknown]
  - Gynaecomastia [Unknown]
